FAERS Safety Report 6684976-8 (Version None)
Quarter: 2010Q2

REPORT INFORMATION
  Report Type: 
  Country: None (occurrence: None)
  Receive Date: 20100416
  Receipt Date: 20100412
  Transmission Date: 20101027
  Serious: Yes (Disabling)
  Sender: FDA-Public Use
  Company Number: US-TEVA-228555USA

PATIENT
  Sex: Female

DRUGS (1)
  1. ACYCLOVIR SODIUM [Suspect]
     Indication: ORAL HERPES
     Route: 048
     Dates: start: 20100112, end: 20100120

REACTIONS (17)
  - AMNESIA [None]
  - ARTHRALGIA [None]
  - BLINDNESS TRANSIENT [None]
  - COGNITIVE DISORDER [None]
  - DIPLOPIA [None]
  - DYSPAREUNIA [None]
  - DYSPNOEA [None]
  - GAIT DISTURBANCE [None]
  - HYPOAESTHESIA [None]
  - INSOMNIA [None]
  - LOSS OF LIBIDO [None]
  - MUSCULAR WEAKNESS [None]
  - MYALGIA [None]
  - PARAESTHESIA [None]
  - SENSORY DISTURBANCE [None]
  - TEMPERATURE INTOLERANCE [None]
  - VISUAL ACUITY REDUCED [None]
